FAERS Safety Report 6591315-X (Version None)
Quarter: 2010Q1

REPORT INFORMATION
  Report Type: 
  Country: None (occurrence: None)
  Receive Date: 20100219
  Receipt Date: 20100209
  Transmission Date: 20100710
  Serious: Yes (Death, Hospitalization, Other)
  Sender: FDA-Public Use
  Company Number: FR-PFIZER INC-2010018723

PATIENT
  Age: 58 Year
  Sex: Male

DRUGS (15)
  1. IRINOTECAN HCL [Suspect]
     Indication: COLORECTAL CANCER METASTATIC
     Dosage: 144 MG/M2, ONCE IN 2 WEEKS
     Route: 042
     Dates: start: 20050420
  2. FLUOROURACIL [Suspect]
     Indication: COLORECTAL CANCER METASTATIC
     Dosage: 2240 MG/M2, ONCE IN 2 WEEKS
     Route: 042
     Dates: start: 20050420
  3. CETUXIMAB [Suspect]
     Indication: COLORECTAL CANCER METASTATIC
     Dosage: 250 MG/M2, WEEKLY
     Route: 041
     Dates: start: 20050420
  4. FOLINIC ACID [Suspect]
     Indication: COLORECTAL CANCER METASTATIC
     Dosage: 200 MG/M2, ONCE IN 2 WEEKS
     Route: 042
     Dates: start: 20050420
  5. RANITIDINE [Concomitant]
  6. DEBRIDAT ^PARKE-DAVIS^ [Concomitant]
     Dosage: 300 MG/DAY
  7. POTASSIUM BICARBONATE [Concomitant]
  8. FUNGIZONE [Concomitant]
  9. DURAGESIC-100 [Concomitant]
  10. ATENOLOL [Concomitant]
  11. LASILIX [Concomitant]
  12. IMODIUM ^JANSSEN-CILAG^ [Concomitant]
  13. SPASFON [Concomitant]
     Indication: ABDOMINAL PAIN
     Dosage: 240 MG
  14. INSULIN ACTRAPID HUMAN [Concomitant]
     Indication: DIABETES MELLITUS
  15. METHYLPREDNISOLONE [Concomitant]
     Dosage: 80 MG

REACTIONS (8)
  - ASTHENIA [None]
  - DIARRHOEA [None]
  - DISEASE PROGRESSION [None]
  - DYSPHAGIA [None]
  - FEBRILE BONE MARROW APLASIA [None]
  - GENERAL PHYSICAL HEALTH DETERIORATION [None]
  - HYPERGLYCAEMIA [None]
  - THROMBOCYTOPENIA [None]
